FAERS Safety Report 6152231-0 (Version None)
Quarter: 2009Q2

REPORT INFORMATION
  Report Type: 
  Country: None (occurrence: None)
  Receive Date: 20090410
  Receipt Date: 20090327
  Transmission Date: 20091009
  Serious: Yes (Hospitalization)
  Sender: FDA-Public Use
  Company Number: JP-GENENTECH-277091

PATIENT
  Sex: Female
  Weight: 60 kg

DRUGS (4)
  1. AVASTIN [Suspect]
     Indication: COLORECTAL CANCER METASTATIC
     Dosage: 5 MG/KG, Q2W
     Route: 041
     Dates: start: 20071217
  2. OXALIPLATIN [Suspect]
     Indication: LARGE INTESTINE CARCINOMA
     Dosage: 120 MG, Q2W
     Route: 041
     Dates: start: 20071024, end: 20090108
  3. FLUOROURACIL [Suspect]
     Indication: LARGE INTESTINE CARCINOMA
     Dosage: 1500 MG, Q2W
     Route: 042
     Dates: start: 20071024, end: 20090101
  4. CALCIUM LEVOFOLINATE [Suspect]
     Indication: LARGE INTESTINE CARCINOMA
     Dosage: 150 MG, Q2W
     Route: 041
     Dates: start: 20071024, end: 20090101

REACTIONS (1)
  - LEUKOENCEPHALOPATHY [None]
